FAERS Safety Report 10966809 (Version 3)
Quarter: 2016Q4

REPORT INFORMATION
  Report Type: Report from Study
  Country: JP (occurrence: JP)
  Receive Date: 20150330
  Receipt Date: 20161202
  Transmission Date: 20170206
  Serious: Yes (Death)
  Sender: FDA-Public Use
  Company Number: JP-SA-2015SA039384

PATIENT
  Age: 62 Year
  Sex: Male
  Weight: 73.9 kg

DRUGS (32)
  1. PREDONINE [Concomitant]
     Active Substance: PREDNISOLONE\PREDNISOLONE ACETATE\PREDNISOLONE SODIUM SUCCINATE
     Indication: PROPHYLAXIS
     Dates: start: 20141009, end: 20150103
  2. PREGABALIN. [Concomitant]
     Active Substance: PREGABALIN
  3. CARBAZOCHROME SODIUM SULFONATE [Concomitant]
     Active Substance: CARBAZOCHROME SODIUM SULFONATE
  4. CALONAL [Concomitant]
     Active Substance: ACETAMINOPHEN
  5. OXYCONTIN [Concomitant]
     Active Substance: OXYCODONE HYDROCHLORIDE
  6. JEVTANA [Suspect]
     Active Substance: CABAZITAXEL
     Indication: PROSTATE CANCER
     Route: 042
     Dates: start: 20150109, end: 20150109
  7. ADONA [Concomitant]
     Active Substance: CARBAZOCHROME SODIUM SULFONATE
  8. DEXART [Concomitant]
     Active Substance: DEXAMETHASONE SODIUM PHOSPHATE
     Indication: PREMEDICATION
     Route: 042
     Dates: start: 20150209, end: 20150209
  9. ACETAMINOPHEN. [Concomitant]
     Active Substance: ACETAMINOPHEN
  10. TRANEXAMIC ACID. [Concomitant]
     Active Substance: TRANEXAMIC ACID
  11. RANITIDINE HYDROCHLORIDE. [Concomitant]
     Active Substance: RANITIDINE HYDROCHLORIDE
  12. PREDNISOLONE. [Concomitant]
     Active Substance: PREDNISOLONE
     Dates: start: 2014, end: 201501
  13. LYRICA [Concomitant]
     Active Substance: PREGABALIN
  14. OXINORM [Concomitant]
     Active Substance: OXYCODONE HYDROCHLORIDE
  15. CASODEX [Concomitant]
     Active Substance: BICALUTAMIDE
     Dates: start: 201005
  16. ABIRATERONE ACETATE [Concomitant]
     Active Substance: ABIRATERONE ACETATE
     Dates: start: 2014, end: 201501
  17. URIEF [Concomitant]
     Active Substance: SILODOSIN
  18. ZANTAC [Concomitant]
     Active Substance: RANITIDINE HYDROCHLORIDE
     Indication: PREMEDICATION
     Route: 042
     Dates: start: 20150209, end: 20150209
  19. ESTRACYT [Concomitant]
     Active Substance: ESTRAMUSTINE PHOSPHATE SODIUM
     Dates: start: 201005
  20. JEVTANA [Suspect]
     Active Substance: CABAZITAXEL
     Indication: PROSTATE CANCER
     Route: 042
     Dates: start: 20150209, end: 20150209
  21. RABEPRAZOLE [Concomitant]
     Active Substance: RABEPRAZOLE
  22. LOXOPROFEN [Concomitant]
     Active Substance: LOXOPROFEN
  23. ODYNE [Concomitant]
     Active Substance: FLUTAMIDE
     Dates: start: 201005
  24. AMITRIPTYLINE HYDROCHLORIDE. [Concomitant]
     Active Substance: AMITRIPTYLINE HYDROCHLORIDE
  25. DEXAMETHASONE SODIUM PHOSPHATE. [Concomitant]
     Active Substance: DEXAMETHASONE SODIUM PHOSPHATE
  26. TRANSAMIN [Concomitant]
     Active Substance: TRANEXAMIC ACID
  27. OXYCODONE HYDROCHLORIDE. [Concomitant]
     Active Substance: OXYCODONE HYDROCHLORIDE
  28. SILODOSIN [Concomitant]
     Active Substance: SILODOSIN
  29. CHLORPHENIRAMINE MALEATE. [Concomitant]
     Active Substance: CHLORPHENIRAMINE MALEATE
  30. TRYPTANOL [Concomitant]
     Active Substance: AMITRIPTYLINE
  31. POLARAMINE [Concomitant]
     Active Substance: DEXCHLORPHENIRAMINE MALEATE
     Indication: PREMEDICATION
     Route: 042
     Dates: start: 20150209, end: 20150209
  32. XTANDI [Concomitant]
     Active Substance: ENZALUTAMIDE
     Dates: start: 201005

REACTIONS (4)
  - Febrile neutropenia [Fatal]
  - Hypoalbuminaemia [Fatal]
  - Condition aggravated [Fatal]
  - Vomiting [Not Recovered/Not Resolved]

NARRATIVE: CASE EVENT DATE: 20150209
